FAERS Safety Report 9356871 (Version 4)
Quarter: 2013Q3

REPORT INFORMATION
  Report Type: Spontaneous
  Country: JP (occurrence: JP)
  Receive Date: 20130620
  Receipt Date: 20130913
  Transmission Date: 20140515
  Serious: Yes (Hospitalization)
  Sender: FDA-Public Use
  Company Number: JP-AMGEN-JPNSP2013042681

PATIENT
  Age: 45 Year
  Sex: Female
  Weight: 45 kg

DRUGS (12)
  1. ENBREL [Suspect]
     Indication: RHEUMATOID ARTHRITIS
     Dosage: 50 MG, 1X/DAY
     Route: 058
     Dates: start: 20130307, end: 20130531
  2. PREDNISOLONE [Concomitant]
     Indication: RHEUMATOID ARTHRITIS
     Dosage: 2 MG, 2X/DAY
     Route: 048
     Dates: start: 20120412
  3. RHEUMATREX                         /00113802/ [Concomitant]
     Indication: RHEUMATOID ARTHRITIS
     Dosage: 8 MG, 2X/WEEK
     Route: 048
     Dates: start: 20070423, end: 20130605
  4. OMEPRAL                            /00661201/ [Concomitant]
     Indication: PROPHYLAXIS AGAINST GASTROINTESTINAL ULCER
     Dosage: 20 MG, 1X/DAY
     Route: 048
     Dates: start: 20121213, end: 20130605
  5. AZULFIDINE [Concomitant]
     Indication: RHEUMATOID ARTHRITIS
     Dosage: 500 MG, 2X/DAY
     Route: 048
     Dates: start: 20101210, end: 20120521
  6. AZULFIDINE [Concomitant]
     Dosage: 500 MG, 2X/DAY
     Route: 048
     Dates: start: 20130605
  7. SELBEX [Concomitant]
     Indication: GASTRIC ULCER
     Dosage: 50 MG, 2X/DAY
     Route: 048
     Dates: start: 20101127
  8. CELECOX [Concomitant]
     Indication: RHEUMATOID ARTHRITIS
     Dosage: 200 MG, 2X/DAY
     Route: 048
     Dates: start: 20121110, end: 20130605
  9. FOLIAMIN [Concomitant]
     Indication: FOLATE DEFICIENCY
     Dosage: 5 MG, WEEKLY
     Route: 048
     Dates: start: 20130203, end: 20130605
  10. MINODRONIC ACID [Concomitant]
     Indication: OSTEOPOROSIS
     Dosage: 50 MG, MONTHLY
     Route: 048
     Dates: start: 20130203
  11. VOLTAREN                           /00372301/ [Concomitant]
     Indication: RHEUMATOID ARTHRITIS
     Dosage: UNK UNK, AS NECESSARY
  12. SELTOUCH [Concomitant]
     Indication: RHEUMATOID ARTHRITIS
     Dosage: UNK UNK, AS NECESSARY
     Route: 062

REACTIONS (3)
  - Lung disorder [Recovering/Resolving]
  - Organising pneumonia [Recovering/Resolving]
  - Pneumonia [Recovering/Resolving]
